FAERS Safety Report 24830900 (Version 1)
Quarter: 2025Q1

REPORT INFORMATION
  Report Type: Spontaneous
  Country: US (occurrence: US)
  Receive Date: 20250110
  Receipt Date: 20250110
  Transmission Date: 20250408
  Serious: Yes (Death)
  Sender: PERRIGO
  Company Number: US-PERRIGO-25US000478

PATIENT
  Age: 57 Year
  Sex: Female

DRUGS (6)
  1. CETIRIZINE HYDROCHLORIDE [Suspect]
     Active Substance: CETIRIZINE HYDROCHLORIDE
     Indication: Suspected suicide
     Route: 050
  2. LITHIUM [Suspect]
     Active Substance: LITHIUM
     Indication: Suspected suicide
     Route: 050
  3. CLONIDINE [Suspect]
     Active Substance: CLONIDINE
     Indication: Suspected suicide
     Route: 050
  4. CLONAZEPAM [Suspect]
     Active Substance: CLONAZEPAM
     Indication: Suspected suicide
     Route: 050
  5. PREGABALIN [Suspect]
     Active Substance: PREGABALIN
     Indication: Suspected suicide
     Route: 050
  6. FLUOXETINE [Suspect]
     Active Substance: FLUOXETINE HYDROCHLORIDE
     Indication: Suspected suicide
     Route: 050

REACTIONS (2)
  - Exposure to toxic agent [Fatal]
  - Completed suicide [Fatal]

NARRATIVE: CASE EVENT DATE: 20230101
